FAERS Safety Report 6437727-6 (Version None)
Quarter: 2009Q4

REPORT INFORMATION
  Report Type: 
  Country: None (occurrence: None)
  Receive Date: 20091109
  Receipt Date: 20091029
  Transmission Date: 20100525
  Serious: Yes (Other)
  Sender: FDA-Public Use
  Company Number: 2009AL006925

PATIENT
  Age: 73 Year
  Sex: Male

DRUGS (3)
  1. LIDOCAINE HYDROCHLORIDE 2% [Suspect]
     Indication: LOCAL ANAESTHESIA
     Dosage: 2.2 ML/X1; DENT
     Route: 004
     Dates: start: 20060613
  2. ADRENALINE [Concomitant]
  3. OXYGEN [Concomitant]

REACTIONS (2)
  - DEPRESSED LEVEL OF CONSCIOUSNESS [None]
  - SYNCOPE [None]
